FAERS Safety Report 20807421 (Version 1)
Quarter: 2022Q2

REPORT INFORMATION
  Report Type: Other
  Country: BE (occurrence: None)
  Receive Date: 20220510
  Receipt Date: 20220510
  Transmission Date: 20220721
  Serious: Yes (Other)
  Sender: FDA-Public Use
  Company Number: BE-ROCHE-3092546

PATIENT
  Age: 49 Year
  Sex: Male

DRUGS (1)
  1. RITUXIMAB [Suspect]
     Active Substance: RITUXIMAB
     Indication: Product used for unknown indication
     Dosage: WEEKLY FOR 4 WEEKS FOLLOWED BY 4 ADMINISTRATIONS WITH A 3-WEEK INTERVAL
     Route: 065

REACTIONS (1)
  - Autoimmune haemolytic anaemia [Unknown]
